FAERS Safety Report 5951986-5 (Version None)
Quarter: 2008Q4

REPORT INFORMATION
  Report Type: 
  Country: None (occurrence: None)
  Receive Date: 20081113
  Receipt Date: 20071019
  Transmission Date: 20090506
  Serious: No
  Sender: FDA-Public Use
  Company Number: A0688742A

PATIENT
  Age: 64 Year
  Sex: Male

DRUGS (4)
  1. COREG [Suspect]
     Dosage: 6.25MG TWICE PER DAY
     Route: 048
     Dates: start: 20041101
  2. ALTACE [Concomitant]
  3. DIETARY SUPPLEMENT [Concomitant]
  4. DIGOXIN [Concomitant]

REACTIONS (7)
  - ABNORMAL DREAMS [None]
  - ANXIETY [None]
  - CHEST DISCOMFORT [None]
  - DEPRESSION [None]
  - DRUG INEFFECTIVE [None]
  - LETHARGY [None]
  - MOOD ALTERED [None]
